FAERS Safety Report 9053749 (Version 1)
Quarter: 2013Q1

REPORT INFORMATION
  Report Type: Spontaneous
  Country: US (occurrence: None)
  Receive Date: 20130117
  Receipt Date: 20130117
  Transmission Date: 20140127
  Serious: Yes (Death, Hospitalization, Other)
  Sender: FDA-Public Use
  Company Number: 2013P1000454

PATIENT
  Age: 89 Year
  Sex: Male

DRUGS (9)
  1. PREDNISONE [Suspect]
     Indication: POLYMYALGIA RHEUMATICA
  2. PREDNISONE [Suspect]
     Indication: TEMPORAL ARTERITIS
  3. FUROSEMIDE [Concomitant]
  4. AMIODARONE [Concomitant]
  5. LEVOTHYROXINE [Concomitant]
  6. ALENDRONATE [Concomitant]
  7. ESZOPICLONE [Concomitant]
  8. LOSARTAN [Concomitant]
  9. WARFARIN [Concomitant]

REACTIONS (22)
  - Asthenia [None]
  - Fatigue [None]
  - Sleep disorder [None]
  - Confusional state [None]
  - Gait disturbance [None]
  - Balance disorder [None]
  - Aphasia [None]
  - Body temperature increased [None]
  - Contusion [None]
  - Visual acuity reduced [None]
  - Pupillary reflex impaired [None]
  - White blood cell count increased [None]
  - Platelet count increased [None]
  - International normalised ratio increased [None]
  - Pleural effusion [None]
  - Pulmonary mass [None]
  - Brain oedema [None]
  - Brain mass [None]
  - Central nervous system lesion [None]
  - Pulmonary fibrosis [None]
  - Nocardia test positive [None]
  - Mycobacterium test positive [None]
